FAERS Safety Report 22522405 (Version 1)
Quarter: 2023Q2

REPORT INFORMATION
  Report Type: Spontaneous
  Country: KR (occurrence: KR)
  Receive Date: 20230605
  Receipt Date: 20230605
  Transmission Date: 20230722
  Serious: Yes (Hospitalization)
  Sender: FDA-Public Use
  Company Number: KR-ORGANON-O2305KOR003081

PATIENT
  Age: 82 Year
  Sex: Male
  Weight: 91 kg

DRUGS (7)
  1. COZAAR [Suspect]
     Active Substance: LOSARTAN POTASSIUM
     Indication: Essential hypertension
     Dosage: 1 FORMULATION, 1 DAY
     Route: 048
     Dates: start: 20170822
  2. PROPAFENONE HYDROCHLORIDE [Concomitant]
     Active Substance: PROPAFENONE HYDROCHLORIDE
     Indication: Arrhythmia
     Dosage: 1 FORMULATION, 0.5 DAY
     Route: 048
     Dates: start: 20170822
  3. ASPIRIN [Concomitant]
     Active Substance: ASPIRIN
     Indication: Prophylaxis
     Dosage: 1 FORMULATION, 1 DAY
     Route: 048
     Dates: start: 20070115
  4. ATORVASTATIN CALCIUM [Concomitant]
     Active Substance: ATORVASTATIN CALCIUM
     Indication: Hyperlipidaemia
     Dosage: 1 FORMULATION, 1 DAY
     Route: 048
     Dates: start: 20170116
  5. R-THIOCTIC ACID TROMETAMINE [Concomitant]
     Indication: Diabetes mellitus
     Dosage: 1 FORMULATION, 1 DAY
     Route: 048
     Dates: start: 20140923
  6. METFORMIN HYDROCHLORIDE [Concomitant]
     Active Substance: METFORMIN HYDROCHLORIDE
     Indication: Diabetes mellitus
     Dosage: 0.5 FORMULATION, 0.5 DAY
     Route: 048
     Dates: start: 20101026
  7. DAPAGLIFLOZIN PROPANEDIOL [Concomitant]
     Active Substance: DAPAGLIFLOZIN PROPANEDIOL
     Indication: Diabetes mellitus
     Dosage: 1 FORMULATION, 1 DAY
     Route: 048
     Dates: start: 20150825

REACTIONS (1)
  - Coronary artery disease [Recovered/Resolved]

NARRATIVE: CASE EVENT DATE: 20181005
